FAERS Safety Report 7951496-X (Version None)
Quarter: 2011Q4

REPORT INFORMATION
  Report Type: 
  Country: None (occurrence: None)
  Receive Date: 20111130
  Receipt Date: 20111128
  Transmission Date: 20120403
  Serious: Yes (Hospitalization)
  Sender: FDA-Public Use
  Company Number: DL2011-0896

PATIENT
  Age: 27 Year
  Sex: Female

DRUGS (2)
  1. MISOPROSTOL [Suspect]
     Dosage: 800 MCG, BUCCAL
     Route: 002
     Dates: start: 20111110
  2. MIFEPRISTONE (MIFEPREX) [Suspect]
     Indication: ABORTION INDUCED
     Dosage: 200 MG, ORAL
     Route: 048
     Dates: start: 20111109

REACTIONS (5)
  - ABORTION INCOMPLETE [None]
  - HEADACHE [None]
  - MUSCLE SPASMS [None]
  - ENDOMETRITIS [None]
  - MENORRHAGIA [None]
